FAERS Safety Report 20340189 (Version 1)
Quarter: 2022Q1

REPORT INFORMATION
  Report Type: Other
  Country: CA (occurrence: CA)
  Receive Date: 20220117
  Receipt Date: 20220117
  Transmission Date: 20220423
  Serious: Yes (Other)
  Sender: FDA-Public Use
  Company Number: CA-GLENMARK PHARMACEUTICALS-2022GMK069772

PATIENT

DRUGS (4)
  1. GABAPENTIN [Suspect]
     Active Substance: GABAPENTIN
     Indication: Product used for unknown indication
     Dosage: 300 MILLIGRAM, TID (3 EVERY 1 DAYS)
     Route: 065
  2. BACLOFEN [Suspect]
     Active Substance: BACLOFEN
     Indication: Product used for unknown indication
     Dosage: 10 MILLIGRAM, TID (3 EVERY 1 DAYS)
     Route: 065
  3. CITALOPRAM HYDROBROMIDE [Suspect]
     Active Substance: CITALOPRAM HYDROBROMIDE
     Indication: Secondary progressive multiple sclerosis
     Dosage: 10 MILLIGRAM, OD (1 EVERY 1 DAYS)
     Route: 048
  4. REBIF [Suspect]
     Active Substance: INTERFERON BETA-1A
     Indication: Product used for unknown indication
     Dosage: UNK, SOLUTION SUBCUTANEOUS
     Route: 065

REACTIONS (14)
  - Dysmetria [Unknown]
  - Product use in unapproved indication [Unknown]
  - Infarction [Unknown]
  - Lhermitte^s sign [Unknown]
  - Lymphopenia [Unknown]
  - Micturition urgency [Unknown]
  - Muscle spasticity [Unknown]
  - Neuralgia [Unknown]
  - Neutropenia [Unknown]
  - Leukopenia [Unknown]
  - Cataract [Unknown]
  - Hypoaesthesia [Unknown]
  - Gait disturbance [Unknown]
  - Asthenia [Unknown]
